FAERS Safety Report 10348062 (Version 1)
Quarter: 2014Q3

REPORT INFORMATION
  Report Type: Spontaneous
  Country: US (occurrence: None)
  Receive Date: 20140723
  Receipt Date: 20140723
  Transmission Date: 20150326
  Serious: Yes (Other)
  Sender: FDA-Public Use
  Company Number: 1210-592

PATIENT
  Age: 79 Year
  Sex: Female

DRUGS (11)
  1. ASCORBIC ACID (ASCORBIC ACID) [Concomitant]
  2. CALCIUIM + VIT D (CALCIUM, COLECALCIFEROL) [Concomitant]
  3. ABC SPECTRUM (MINERAL NOS, VITAMIN NOS) [Concomitant]
  4. BABY ASPIRIN (ACETYLSALICYLIC ACID) [Concomitant]
     Active Substance: ASPIRIN
  5. CALCIUM + D (CALCIUM CARBONATE, COLECALCIFEROL) [Concomitant]
  6. SIMVASTATIN (SIMVASTATIN) [Concomitant]
     Active Substance: SIMVASTATIN
  7. TOPROL XL (METOPROLOL SUCCINATE) [Concomitant]
  8. PAXIL (PIROXICAM) [Concomitant]
  9. EYLEA [Suspect]
     Active Substance: AFLIBERCEPT
     Indication: AGE-RELATED MACULAR DEGENERATION
     Dosage: TOTAL OF 3 DOSES OF STANDARD DOSE OF EYLEA
     Route: 031
     Dates: start: 20120323, end: 20120720
  10. HYDROCHLOROTHIAZIDE (HYDROCHLOROTHIAZIDE) [Concomitant]
     Active Substance: HYDROCHLOROTHIAZIDE
  11. PRILOSEC (OMEPRAZOLE) [Concomitant]
     Active Substance: OMEPRAZOLE MAGNESIUM

REACTIONS (3)
  - Metamorphopsia [None]
  - Uveitis [None]
  - Vitreous floaters [None]

NARRATIVE: CASE EVENT DATE: 201207
